FAERS Safety Report 8471560-9 (Version None)
Quarter: 2012Q2

REPORT INFORMATION
  Report Type: 
  Country: None (occurrence: None)
  Receive Date: 20120627
  Receipt Date: 20120625
  Transmission Date: 20120825
  Serious: Yes (Hospitalization)
  Sender: FDA-Public Use
  Company Number: NZ-SANOFI-AVENTIS-2012SA045170

PATIENT
  Age: 69 Year
  Sex: Female

DRUGS (17)
  1. DIGOXIN [Concomitant]
  2. LANTUS [Suspect]
     Route: 058
     Dates: start: 20111130
  3. CILAZAPRIL/HYDROCHLOROTHIAZIDE [Concomitant]
  4. LEVOTHYROXINE [Concomitant]
  5. ACETAMINOPHEN [Concomitant]
  6. ASPIRIN [Concomitant]
  7. LANTUS [Suspect]
     Dosage: DOSE:60 UNIT(S)
     Route: 058
  8. NOVORAPID [Concomitant]
  9. METFORMIN HCL [Concomitant]
  10. METOPROLOL TARTRATE [Concomitant]
  11. SIMVASTATIN [Concomitant]
  12. LANTUS [Suspect]
     Dosage: DOSE:12 UNIT(S)
     Route: 058
     Dates: start: 20120624
  13. WARFARIN SODIUM [Concomitant]
  14. FUROSEMIDE [Concomitant]
  15. GABAPENTIN [Concomitant]
  16. SPIRONOLACTONE [Concomitant]
  17. OMEPRAZOLE [Concomitant]

REACTIONS (4)
  - GASTROINTESTINAL DISORDER [None]
  - DIARRHOEA [None]
  - ATRIAL FIBRILLATION [None]
  - VOMITING [None]
